FAERS Safety Report 20048325 (Version 1)
Quarter: 2021Q4

REPORT INFORMATION
  Report Type: Spontaneous
  Country: US (occurrence: None)
  Receive Date: 20211109
  Receipt Date: 20211109
  Transmission Date: 20220303
  Serious: Yes (Other)
  Sender: FDA-Public Use
  Company Number: None

PATIENT
  Age: 51 Year
  Sex: Male
  Weight: 85.3 kg

DRUGS (23)
  1. CASIRIVIMAB [Suspect]
     Active Substance: CASIRIVIMAB
     Indication: COVID-19
     Dosage: FREQUENCY : ONCE;?
     Route: 042
  2. IMDEVIMAB [Suspect]
     Active Substance: IMDEVIMAB
     Indication: COVID-19
     Dosage: FREQUENCY : ONCE;?
     Route: 042
  3. TRIUMEQ [Concomitant]
     Active Substance: ABACAVIR SULFATE\DOLUTEGRAVIR SODIUM\LAMIVUDINE
  4. TAMSULOSIN [Concomitant]
     Active Substance: TAMSULOSIN
  5. ALBUTEROL [Concomitant]
     Active Substance: ALBUTEROL
  6. APIXABAN [Concomitant]
     Active Substance: APIXABAN
  7. LUMIGAN [Concomitant]
     Active Substance: BIMATOPROST
  8. CALCIUM CARBONATE [Concomitant]
     Active Substance: CALCIUM CARBONATE
  9. CARVEDILOL [Concomitant]
     Active Substance: CARVEDILOL
  10. VITAMIN D3 [Concomitant]
     Active Substance: CHOLECALCIFEROL
  11. FENOFIBRATE [Concomitant]
     Active Substance: FENOFIBRATE
  12. Detromethorphan-guaifenesin [Concomitant]
  13. IRON [Concomitant]
     Active Substance: IRON
  14. hydrocortisone oral and topical [Concomitant]
  15. HYDROXYZINE [Concomitant]
     Active Substance: HYDROXYZINE HYDROCHLORIDE
  16. INSULIN NOS [Concomitant]
     Active Substance: INSULIN NOS
  17. ONDANSETRON [Concomitant]
     Active Substance: ONDANSETRON
  18. PANTOPRAZOLE [Concomitant]
     Active Substance: PANTOPRAZOLE
  19. GLYCOLAX [Concomitant]
     Active Substance: POLYETHYLENE GLYCOL 3350
  20. PRAVASTATIN [Concomitant]
     Active Substance: PRAVASTATIN
  21. SENNA [Concomitant]
     Active Substance: SENNA LEAF\SENNOSIDES\SENNOSIDES A AND B
  22. SERTRALINE [Concomitant]
     Active Substance: SERTRALINE HYDROCHLORIDE
  23. SUMATRIPTAN [Concomitant]
     Active Substance: SUMATRIPTAN

REACTIONS (4)
  - Nausea [None]
  - Dizziness [None]
  - Dysphagia [None]
  - Infusion related reaction [None]
